FAERS Safety Report 9494788 (Version 3)
Quarter: 2013Q4

REPORT INFORMATION
  Report Type: Spontaneous
  Country: US (occurrence: US)
  Receive Date: 20130903
  Receipt Date: 20131031
  Transmission Date: 20140711
  Serious: Yes (Other)
  Sender: FDA-Public Use
  Company Number: US-PFIZER INC-2013251963

PATIENT
  Age: 83 Year
  Sex: Female
  Weight: 65.31 kg

DRUGS (21)
  1. LYRICA [Suspect]
     Indication: NEUROPATHY PERIPHERAL
     Dosage: 75 MG, 2X/DAY
     Route: 048
     Dates: start: 2003, end: 201308
  2. LYRICA [Suspect]
     Indication: NEUROLOGICAL SYMPTOM
  3. LYRICA [Suspect]
     Indication: PAIN IN EXTREMITY
  4. LYRICA [Suspect]
     Indication: PAIN IN EXTREMITY
  5. DETROL LA [Suspect]
     Indication: BLADDER DISORDER
     Dosage: 4 MG, DAILY
     Route: 048
     Dates: start: 2010, end: 201308
  6. DETROL LA [Suspect]
     Indication: URINARY TRACT DISORDER
  7. DETROL LA [Suspect]
     Indication: INCONTINENCE
  8. ICAPS [Concomitant]
     Indication: EYE DISORDER
     Dosage: UNK
  9. VITAMIN D [Concomitant]
     Dosage: UNK, 2X/DAY
  10. VITAMIN E [Concomitant]
     Dosage: UNK, DAILY
  11. VITAMIN B12 [Concomitant]
     Dosage: UNK, DAILY
  12. FERROUS SULPHATE [Concomitant]
     Dosage: 1 DF, ALTERNATE DAY
     Route: 048
  13. COLACE [Concomitant]
     Indication: FAECES HARD
     Dosage: UNK, 3X/DAY
  14. FISH OIL [Concomitant]
     Dosage: 1 MG, 1X/DAY
  15. NEXIUM [Concomitant]
     Indication: GASTROOESOPHAGEAL REFLUX DISEASE
     Dosage: 40 MG, 2X/DAY
  16. SOMA [Concomitant]
     Indication: SLEEP DISORDER
     Dosage: 350 MG, AS NEEDED
  17. AMPICILLIN [Concomitant]
     Dosage: 500 MG, UNK
  18. CORTISONE [Concomitant]
     Indication: BACK DISORDER
     Dosage: UNK
  19. ASPIRIN [Concomitant]
     Dosage: 81 MG, 1X/DAY
  20. K-TAB [Concomitant]
     Dosage: 750 MG, 2X/DAY
  21. SYNTHROID [Concomitant]
     Indication: THYROID DISORDER
     Dosage: 112 UG, 1X/DAY

REACTIONS (4)
  - Cerebrovascular accident [Unknown]
  - Paraesthesia [Unknown]
  - Pain in extremity [Unknown]
  - Urinary incontinence [Unknown]
